FAERS Safety Report 10432643 (Version 1)
Quarter: 2014Q3

REPORT INFORMATION
  Report Type: Spontaneous
  Country: DE (occurrence: None)
  Receive Date: 20140903
  Receipt Date: 20140903
  Transmission Date: 20150326
  Serious: Yes (Life-Threatening, Hospitalization)
  Sender: FDA-Public Use
  Company Number: 2506605

PATIENT
  Age: 32 Year
  Sex: Female
  Weight: 52 kg

DRUGS (2)
  1. PLACITAXEL (MANUFACTURER UNKNOWN) (PACLITAXEL) (PACLITAXEL) [Suspect]
     Active Substance: PACLITAXEL
     Indication: BREAST CANCER
     Route: 042
  2. TRASTUZUMAB [Concomitant]
     Active Substance: TRASTUZUMAB

REACTIONS (3)
  - Respiratory arrest [None]
  - Pleural effusion [None]
  - Alveolitis [None]

NARRATIVE: CASE EVENT DATE: 20140726
